FAERS Safety Report 5371607-2 (Version None)
Quarter: 2007Q2

REPORT INFORMATION
  Report Type: 
  Country: None (occurrence: None)
  Receive Date: 20070615
  Receipt Date: 20061013
  Transmission Date: 20071010
  Serious: Yes (Other)
  Sender: FDA-Public Use
  Company Number: 200612493US

PATIENT
  Age: 74 Year
  Sex: Female

DRUGS (1)
  1. INSULIN GLARINE (LANTUS) [Suspect]
     Dates: start: 20060301

REACTIONS (1)
  - BLOOD GLUCOSE FLUCTUATION [None]
